FAERS Safety Report 7487591-1 (Version None)
Quarter: 2011Q1

REPORT INFORMATION
  Report Type: 
  Country: None (occurrence: None)
  Receive Date: 20110309
  Receipt Date: 20110104
  Transmission Date: 20110831
  Serious: Yes (Other)
  Sender: FDA-Public Use
  Company Number: 2011SP000365

PATIENT
  Age: 30 Year
  Sex: Female

DRUGS (1)
  1. SAPHRIS [Suspect]
     Indication: PANIC DISORDER
     Dosage: 5 MG; ONCE; SL
     Route: 060

REACTIONS (5)
  - UNDERDOSE [None]
  - ANXIETY [None]
  - MUSCLE TIGHTNESS [None]
  - TRISMUS [None]
  - INAPPROPRIATE SCHEDULE OF DRUG ADMINISTRATION [None]
